FAERS Safety Report 7249620-X (Version None)
Quarter: 2011Q1

REPORT INFORMATION
  Report Type: 
  Country: None (occurrence: None)
  Receive Date: 20110128
  Receipt Date: 20110115
  Transmission Date: 20110831
  Serious: Yes (Life-Threatening, Hospitalization, Disabling)
  Sender: FDA-Public Use
  Company Number: CO-SANOFI-AVENTIS-2011SA003056

PATIENT
  Age: 38 Year
  Sex: Male
  Weight: 76 kg

DRUGS (18)
  1. METOPROLOL [Concomitant]
     Indication: SUPRAVENTRICULAR TACHYCARDIA
     Dates: start: 20101208, end: 20101208
  2. IPRATROPIUM BROMIDE [Concomitant]
     Dosage: DOSE:1.25 MILLIGRAM(S)/MILLILITRE
     Route: 055
     Dates: start: 20101208
  3. AZITHROMYCIN [Concomitant]
     Dates: start: 20101203, end: 20101207
  4. LINEZOLID [Concomitant]
  5. AMIODARONE [Concomitant]
     Route: 042
     Dates: start: 20101209, end: 20101209
  6. AMIODARONE [Concomitant]
     Route: 065
     Dates: start: 20101223, end: 20101223
  7. WARFARIN SODIUM [Concomitant]
     Dates: start: 20101209
  8. AMIODARONE [Concomitant]
     Indication: ATRIAL FIBRILLATION
     Route: 042
     Dates: start: 20101208, end: 20101208
  9. MOXIFLOXACIN [Concomitant]
     Indication: PNEUMONIA
     Route: 042
     Dates: start: 20101208, end: 20101209
  10. DALTEPARIN SODIUM [Concomitant]
     Dates: start: 20101208
  11. OSELTAMIVIR [Concomitant]
     Route: 048
     Dates: start: 20101208
  12. ALBUTEROL [Concomitant]
     Route: 055
     Dates: start: 20101208
  13. MULTAQ [Suspect]
     Indication: ATRIAL FIBRILLATION
     Route: 048
     Dates: start: 20101223, end: 20110114
  14. METOPROLOL [Concomitant]
     Dates: start: 20101208
  15. OMEPRAZOLE [Concomitant]
     Dates: start: 20101208
  16. ENOXAPARIN [Concomitant]
     Dates: start: 20101209
  17. INSULIN ZINC SUSPENSION (CRYSTALLINE) [Concomitant]
     Dates: start: 20101208, end: 20101208
  18. AMIODARONE [Concomitant]
     Route: 040
     Dates: start: 20101209, end: 20101209

REACTIONS (7)
  - CARDIAC FAILURE ACUTE [None]
  - OFF LABEL USE [None]
  - CARDIOGENIC SHOCK [None]
  - HEPATIC FAILURE [None]
  - RENAL FAILURE ACUTE [None]
  - CONDITION AGGRAVATED [None]
  - HEPATOCELLULAR INJURY [None]
